FAERS Safety Report 18264902 (Version 6)
Quarter: 2022Q3

REPORT INFORMATION
  Report Type: Spontaneous
  Country: US (occurrence: US)
  Receive Date: 20200914
  Receipt Date: 20220726
  Transmission Date: 20221026
  Serious: Yes (Hospitalization, Other)
  Sender: FDA-Public Use
  Company Number: US-PFIZER INC-2020354055

PATIENT
  Age: 64 Year
  Sex: Male
  Weight: 82.55 kg

DRUGS (24)
  1. RAPAMUNE [Suspect]
     Active Substance: SIROLIMUS
     Indication: Immunosuppressant drug therapy
     Dosage: 1 MG, 2X/DAY
  2. RAPAMUNE [Suspect]
     Active Substance: SIROLIMUS
     Indication: Renal transplant
     Dosage: 2 MG, DAILY
  3. RAPAMUNE [Suspect]
     Active Substance: SIROLIMUS
     Indication: Pancreas transplant
  4. RAPAMUNE [Suspect]
     Active Substance: SIROLIMUS
     Indication: Squamous cell carcinoma of skin
  5. TACROLIMUS [Concomitant]
     Active Substance: TACROLIMUS
     Dosage: 1 MG, 4X/DAY (2 IN THE MORNING, 2 IN THE EVENING)
  6. LISINOPRIL [Concomitant]
     Active Substance: LISINOPRIL
     Dosage: 5 MG, 2X/DAY(5 MILLIGRAM  AM, PM)
  7. PREDNISONE [Concomitant]
     Active Substance: PREDNISONE
     Dosage: 5 MG, 1X/DAY(5 MILLIGRAM, AM)
  8. FLOMAX [Concomitant]
     Active Substance: TAMSULOSIN HYDROCHLORIDE
     Dosage: 0.4 MG (IN THE AFTERNOON)
  9. BUPROPION HYDROCHLORIDE XL [Concomitant]
     Active Substance: BUPROPION HYDROCHLORIDE
     Dosage: 150 MG AM
  10. ISOSORBIDE MONONITRATE [Concomitant]
     Active Substance: ISOSORBIDE MONONITRATE
     Dosage: 30 MG, 2X/DAY(60 MILLIGRAM ER ONE IN THE MORNING, I ALSO HAVE A 30 MILLIGRAM FROM SOMEWHERE)
  11. ATORVASTATIN [Concomitant]
     Active Substance: ATORVASTATIN
     Dosage: 20 MG, 1X/DAY(20 MILLIGRAM, PM)
  12. REMERON [Concomitant]
     Active Substance: MIRTAZAPINE
     Dosage: 7.5 MG, 1X/DAY (AT NIGHT IT HELPS WITH SLEEP BUT THE EFFECTS WEAR OFF AFTER ABOUT 6 WEEKS)
  13. METOPROLOL [Concomitant]
     Active Substance: METOPROLOL
     Dosage: ONE IN THE MORNING
  14. PLAVIX [Concomitant]
     Active Substance: CLOPIDOGREL BISULFATE
     Dosage: 75 MG, 1X/DAY (AT THE PM)
  15. VITAMIN D2 [Concomitant]
     Active Substance: ERGOCALCIFEROL
     Dosage: UNK
  16. PROMETHAZINE [Concomitant]
     Active Substance: PROMETHAZINE HYDROCHLORIDE
     Indication: Nausea
     Dosage: 25 MG, AS NEEDED
  17. CYMBALTA [Concomitant]
     Active Substance: DULOXETINE HYDROCHLORIDE
     Dosage: 60 MG, 1X/DAY (AM)
  18. ACETAMINOPHEN\HYDROCODONE [Concomitant]
     Active Substance: ACETAMINOPHEN\HYDROCODONE
     Indication: Pelvic fracture
     Dosage: UNK (EVERY 8 HOURS)
  19. LANTUS [Concomitant]
     Active Substance: INSULIN GLARGINE
     Dosage: UNK, 1X/DAY(26 UNITS, EVERY NIGHTS)
  20. HUMALOG [Concomitant]
     Active Substance: INSULIN LISPRO
     Dosage: UNK, AS NEEDED
  21. ALPHAGAN P [Concomitant]
     Active Substance: BRIMONIDINE TARTRATE
     Dosage: UNK, 2X/DAY(TAKE ALPHAGAN P, AM AND PM IN THE LEFT EYE )
  22. LUMIGAN [Concomitant]
     Active Substance: BIMATOPROST
     Dosage: UNK, 1X/DAY(TAKE LUMIGAN EYE DROP LEFT EYE ONE DROP, PM)
  23. DORZOLAMIDE HYDROCHLORIDE [Concomitant]
     Active Substance: DORZOLAMIDE HYDROCHLORIDE
     Dosage: UNK, 2X/DAY(DORZOLAMIDE HCL ONE DROP AM AND PM)
  24. XANAX [Concomitant]
     Active Substance: ALPRAZOLAM
     Dosage: 0.25 MG, AS NEEDED

REACTIONS (8)
  - Pelvic fracture [Unknown]
  - Fall [Unknown]
  - Hyponatraemia [Unknown]
  - Deafness [Unknown]
  - Blindness [Unknown]
  - Diabetes mellitus [Unknown]
  - General physical condition abnormal [Unknown]
  - Renal disorder [Unknown]

NARRATIVE: CASE EVENT DATE: 20220101
